FAERS Safety Report 17591176 (Version 1)
Quarter: 2020Q1

REPORT INFORMATION
  Report Type: Spontaneous
  Country: US (occurrence: US)
  Receive Date: 20200326
  Receipt Date: 20200326
  Transmission Date: 20200409
  Serious: No
  Sender: FDA-Public Use
  Company Number: None

PATIENT
  Age: 38 Year
  Sex: Female

DRUGS (1)
  1. COPAXONE [Suspect]
     Active Substance: GLATIRAMER ACETATE
     Route: 058
     Dates: start: 202002

REACTIONS (6)
  - Injection site pain [None]
  - Hyperhidrosis [None]
  - Immediate post-injection reaction [None]
  - Chest pain [None]
  - Hypoaesthesia [None]
  - Movement disorder [None]

NARRATIVE: CASE EVENT DATE: 20200326
